FAERS Safety Report 25283538 (Version 3)
Quarter: 2025Q3

REPORT INFORMATION
  Report Type: Spontaneous
  Country: US (occurrence: US)
  Receive Date: 20250508
  Receipt Date: 20250731
  Transmission Date: 20251020
  Serious: No
  Sender: PFIZER
  Company Number: US-PFIZER INC-202500094435

PATIENT
  Age: 71 Year
  Sex: Male
  Weight: 68.04 kg

DRUGS (1)
  1. NURTEC ODT [Suspect]
     Active Substance: RIMEGEPANT SULFATE
     Indication: Migraine

REACTIONS (2)
  - Drug ineffective [Unknown]
  - Headache [Unknown]
